FAERS Safety Report 7247429-4 (Version None)
Quarter: 2011Q1

REPORT INFORMATION
  Report Type: 
  Country: None (occurrence: None)
  Receive Date: 20110127
  Receipt Date: 20110119
  Transmission Date: 20110831
  Serious: Yes (Hospitalization)
  Sender: FDA-Public Use
  Company Number: PHHO2011NZ01400

PATIENT
  Sex: Female
  Weight: 160.2 kg

DRUGS (3)
  1. AFINITOR [Suspect]
     Indication: METASTATIC RENAL CELL CARCINOMA
     Dosage: 10 MG, QD
     Route: 048
     Dates: start: 20100901
  2. ZOLEDRONATE [Suspect]
     Indication: METASTATIC RENAL CELL CARCINOMA
     Dosage: 4 MG, 4-WEEKLY
     Route: 058
     Dates: start: 20100901
  3. ENOXAPARIN [Concomitant]
     Indication: DEEP VEIN THROMBOSIS

REACTIONS (2)
  - PELVIC PAIN [None]
  - HAEMATURIA [None]
